FAERS Safety Report 5061440-3 (Version None)
Quarter: 2006Q3

REPORT INFORMATION
  Report Type: 
  Country: None (occurrence: None)
  Receive Date: 20060719
  Receipt Date: 20060719
  Transmission Date: 20061208
  Serious: Yes (Hospitalization)
  Sender: FDA-Public Use
  Company Number: None

PATIENT
  Age: 64 Year
  Sex: Male

DRUGS (8)
  1. SOTALOL HCL [Suspect]
     Indication: VENTRICULAR ARRHYTHMIA
     Dosage: 120ML BID
     Dates: start: 20030601
  2. METOPROLOL SA [Suspect]
     Indication: HYPERTENSION
     Dosage: 100 MG QD
     Dates: start: 20060503
  3. FLUOXETINE [Concomitant]
  4. LORTAB [Concomitant]
  5. PROMETHAZINE [Concomitant]
  6. WARFARIN SODIUM [Concomitant]
  7. RANITIDINE [Concomitant]
  8. FOSINOPRIL SODIUM [Suspect]
     Indication: HYPERTENSION
     Dosage: 5MG QD
     Dates: start: 20060503

REACTIONS (1)
  - SYNCOPE [None]
